FAERS Safety Report 5070131-4 (Version None)
Quarter: 2006Q3

REPORT INFORMATION
  Report Type: 
  Country: None (occurrence: None)
  Receive Date: 20060731
  Receipt Date: 20060718
  Transmission Date: 20061208
  Serious: Yes (Hospitalization, Other)
  Sender: FDA-Public Use
  Company Number: 2006RR-03025

PATIENT
  Age: 88 Year
  Sex: Female

DRUGS (10)
  1. SIMVASTATIN [Suspect]
     Indication: ISCHAEMIC HEART DISEASE PROPHYLAXIS
     Dosage: 40 MG, QD, ORAL
     Route: 048
     Dates: start: 20051209, end: 20060517
  2. ALLOPURINOL [Concomitant]
  3. AMIODARONE (AMIODARONE) [Concomitant]
  4. CLARITHROMYCIN [Concomitant]
  5. CLOPIDOGREL [Concomitant]
  6. CO-PROXAMOL [Concomitant]
  7. FUROSEMIDE [Concomitant]
  8. LEVOTHYROXINE SODIUM [Concomitant]
  9. PREDNISOLONE [Concomitant]
  10. RISEDRONATE [Concomitant]

REACTIONS (3)
  - BLOOD CREATINE PHOSPHOKINASE INCREASED [None]
  - MUSCLE NECROSIS [None]
  - MYALGIA [None]
